FAERS Safety Report 7032270-8 (Version None)
Quarter: 2010Q4

REPORT INFORMATION
  Report Type: 
  Country: None (occurrence: None)
  Receive Date: 20101007
  Receipt Date: 20100420
  Transmission Date: 20110411
  Serious: Yes (Death, Other)
  Sender: FDA-Public Use
  Company Number: JP-BRISTOL-MYERS SQUIBB COMPANY-15071301

PATIENT
  Age: 48 Year
  Sex: Female

DRUGS (5)
  1. CETUXIMAB [Suspect]
     Indication: COLON CANCER
     Dates: start: 20081120
  2. OXALIPLATIN [Suspect]
     Indication: COLON CANCER METASTATIC
     Dates: start: 20070511
  3. FOLINIC ACID [Suspect]
     Indication: COLON CANCER METASTATIC
     Dates: start: 20070511
  4. FLUOROURACIL [Suspect]
     Indication: COLON CANCER METASTATIC
     Dosage: 1 DF=400MG/M2 FOLLOWED BY 46-HOUR INFUSION 2400MG/M2
     Dates: start: 20070511
  5. IRINOTECAN HCL [Suspect]
     Indication: COLON CANCER METASTATIC
     Dates: start: 20080501

REACTIONS (3)
  - PNEUMONITIS [None]
  - PULMONARY EMBOLISM [None]
  - VENTRICULAR ARRHYTHMIA [None]
